FAERS Safety Report 5034456-0 (Version None)
Quarter: 2006Q2

REPORT INFORMATION
  Report Type: 
  Country: None (occurrence: None)
  Receive Date: 20060620
  Receipt Date: 20060613
  Transmission Date: 20061013
  Serious: Yes (Hospitalization)
  Sender: FDA-Public Use
  Company Number: RS005993-AUS

PATIENT
  Age: 77 Year
  Sex: Female

DRUGS (4)
  1. RABEPRAZOLE SODIUM [Suspect]
     Dosage: ORAL
     Route: 048
     Dates: start: 20060403
  2. DAPATAB [Concomitant]
  3. CAPOTEN [Concomitant]
  4. DIAMICRON (GLICLAZIDE) [Concomitant]

REACTIONS (3)
  - DEHYDRATION [None]
  - GASTROENTERITIS VIRAL [None]
  - HYPOTENSION [None]
